FAERS Safety Report 10272188 (Version 1)
Quarter: 2014Q3

REPORT INFORMATION
  Report Type: Spontaneous
  Country: FI (occurrence: FI)
  Receive Date: 20140702
  Receipt Date: 20140702
  Transmission Date: 20150326
  Serious: Yes (Death, Hospitalization, Disabling)
  Sender: FDA-Public Use
  Company Number: FI-ROCHE-1426787

PATIENT
  Age: 34 Year
  Sex: Male

DRUGS (21)
  1. MABTHERA [Suspect]
     Active Substance: RITUXIMAB
     Route: 042
     Dates: start: 20120828, end: 20120828
  2. DOXORUBICIN [Suspect]
     Active Substance: DOXORUBICIN
     Route: 042
     Dates: start: 20120917, end: 20120917
  3. ONCOVIN [Suspect]
     Active Substance: VINCRISTINE SULFATE
     Indication: B-CELL LYMPHOMA
     Route: 042
     Dates: start: 20120808, end: 20120808
  4. PREDNISOLON [Suspect]
     Active Substance: PREDNISOLONE
     Indication: B-CELL LYMPHOMA
     Dosage: 100 MG/DAY
     Route: 048
     Dates: start: 20120808, end: 20120812
  5. SYKLOFOSFAMIDE [Suspect]
     Active Substance: CYCLOPHOSPHAMIDE
     Route: 042
     Dates: start: 20120917, end: 20120917
  6. MABTHERA [Suspect]
     Active Substance: RITUXIMAB
     Route: 042
     Dates: start: 20120808, end: 20120808
  7. NEULASTA [Concomitant]
     Active Substance: PEGFILGRASTIM
     Route: 058
     Dates: start: 20120809, end: 20120809
  8. NEULASTA [Concomitant]
     Active Substance: PEGFILGRASTIM
     Route: 058
     Dates: start: 20120919, end: 20120919
  9. CYCLOPHOSPHAMIDE. [Suspect]
     Active Substance: CYCLOPHOSPHAMIDE
     Route: 042
     Dates: start: 20120828, end: 20120828
  10. DOXORUBICIN [Suspect]
     Active Substance: DOXORUBICIN
     Indication: B-CELL LYMPHOMA
     Route: 042
     Dates: start: 20120808, end: 20120808
  11. ONCOVIN [Suspect]
     Active Substance: VINCRISTINE SULFATE
     Route: 042
     Dates: start: 20120828, end: 20120828
  12. ONCOVIN [Suspect]
     Active Substance: VINCRISTINE SULFATE
     Route: 042
     Dates: start: 20120917, end: 20120917
  13. NEULASTA [Concomitant]
     Active Substance: PEGFILGRASTIM
     Route: 058
     Dates: start: 20120829, end: 20120829
  14. ONDANSETRON [Concomitant]
     Active Substance: ONDANSETRON
     Indication: PROPHYLAXIS
     Dosage: 8 TO 6 MG/DAY.
     Route: 048
  15. MABTHERA [Suspect]
     Active Substance: RITUXIMAB
     Indication: B-CELL LYMPHOMA
     Route: 042
     Dates: start: 20120807, end: 20120807
  16. PREDNISOLON [Suspect]
     Active Substance: PREDNISOLONE
     Dosage: 100 MG/DAY
     Route: 048
     Dates: start: 20120918, end: 20120922
  17. PRIMPERAN [Concomitant]
     Active Substance: METOCLOPRAMIDE HYDROCHLORIDE
     Indication: PROPHYLAXIS
     Dosage: 10 TO 30 MG/DAY
     Route: 048
  18. MABTHERA [Suspect]
     Active Substance: RITUXIMAB
     Route: 042
     Dates: start: 20120918, end: 20120918
  19. SYKLOFOSFAMIDE [Suspect]
     Active Substance: CYCLOPHOSPHAMIDE
     Indication: B-CELL LYMPHOMA
     Route: 042
     Dates: start: 20120808, end: 20120808
  20. DOXORUBICIN [Suspect]
     Active Substance: DOXORUBICIN
     Route: 042
     Dates: start: 20120828, end: 20120828
  21. PREDNISOLON [Suspect]
     Active Substance: PREDNISOLONE
     Dosage: 100 MG/DAY
     Route: 048
     Dates: start: 20120828, end: 20120902

REACTIONS (10)
  - General physical health deterioration [Unknown]
  - Encephalitis [Fatal]
  - Depressed level of consciousness [Unknown]
  - Intracranial pressure increased [Not Recovered/Not Resolved]
  - Pyrexia [Unknown]
  - Dysstasia [Unknown]
  - Pneumonia aspiration [Unknown]
  - Muscle spasticity [Unknown]
  - Epilepsy [Unknown]
  - Respiratory disorder [Unknown]

NARRATIVE: CASE EVENT DATE: 20120910
